FAERS Safety Report 8853142 (Version 2)
Quarter: 2012Q4

REPORT INFORMATION
  Report Type: Report from Study
  Country: CA (occurrence: CA)
  Receive Date: 20121022
  Receipt Date: 20121207
  Transmission Date: 20130627
  Serious: Yes (Other)
  Sender: FDA-Public Use
  Company Number: CA-ROCHE-1147665

PATIENT
  Age: 72 Year
  Sex: Female

DRUGS (4)
  1. OMALIZUMAB [Suspect]
     Indication: PRODUCT USED FOR UNKNOWN INDICATION
     Route: 058
     Dates: end: 20121002
  2. OMALIZUMAB [Suspect]
     Route: 065
  3. BROMINE [Concomitant]
  4. AVEENO [Concomitant]

REACTIONS (4)
  - Lichen planus [Unknown]
  - Angioedema [Unknown]
  - Pain [Recovering/Resolving]
  - Drug hypersensitivity [Unknown]
